FAERS Safety Report 20518073 (Version 1)
Quarter: 2022Q1

REPORT INFORMATION
  Report Type: Spontaneous
  Country: GB (occurrence: GB)
  Receive Date: 20220225
  Receipt Date: 20220225
  Transmission Date: 20220423
  Serious: No
  Sender: FDA-Public Use
  Company Number: GB-ORGANON-O2202GBR001622

PATIENT
  Age: 83 Year
  Sex: Male

DRUGS (1)
  1. BETAMETHASONE DIPROPIONATE\CLOTRIMAZOLE [Suspect]
     Active Substance: BETAMETHASONE DIPROPIONATE\CLOTRIMAZOLE
     Indication: Therapeutic skin care topical
     Dosage: UNK

REACTIONS (3)
  - Product label confusion [Unknown]
  - Product prescribing issue [Unknown]
  - Intercepted medication error [Unknown]
